FAERS Safety Report 12089397 (Version 4)
Quarter: 2017Q2

REPORT INFORMATION
  Report Type: Spontaneous
  Country: US (occurrence: US)
  Receive Date: 20160218
  Receipt Date: 20170405
  Transmission Date: 20170829
  Serious: Yes (Hospitalization, Other)
  Sender: FDA-Public Use
  Company Number: US-PFIZER INC-2016036991

PATIENT
  Age: 44 Year
  Sex: Male
  Weight: 58.96 kg

DRUGS (20)
  1. VFEND [Suspect]
     Active Substance: VORICONAZOLE
     Indication: MENINGITIS
     Dosage: 200 MG, 2X/DAY
     Route: 048
  2. TIVICAY [Concomitant]
     Active Substance: DOLUTEGRAVIR SODIUM
     Indication: HERPES ZOSTER DISSEMINATED
     Dosage: 50 MG, 1X/DAY
     Route: 048
     Dates: start: 2015
  3. TIVICAY [Concomitant]
     Active Substance: DOLUTEGRAVIR SODIUM
     Indication: HIV INFECTION
  4. DAPSONE. [Concomitant]
     Active Substance: DAPSONE
     Indication: MENINGITIS
  5. OXYGEN. [Concomitant]
     Active Substance: OXYGEN
     Dosage: UNK
  6. HYDROCODONE [Concomitant]
     Active Substance: HYDROCODONE
     Indication: PAIN
     Dosage: 10 MG, AS NEEDED(EVERY 6-8 HOURS AS NEEDED)
     Dates: start: 2016
  7. DAPSONE. [Concomitant]
     Active Substance: DAPSONE
     Indication: HIV INFECTION
  8. CIPRO HC [Concomitant]
     Active Substance: CIPROFLOXACIN HYDROCHLORIDE\HYDROCORTISONE
     Dosage: UNK (3 DROPS)
  9. VFEND [Suspect]
     Active Substance: VORICONAZOLE
     Indication: MENINGITIS CRYPTOCOCCAL
     Dosage: 200 MG, 2X/DAY(ONE IN THE MORNING AND ONE AT NIGHT)
     Route: 048
     Dates: start: 2015, end: 201702
  10. TRUVADA [Concomitant]
     Active Substance: EMTRICITABINE\TENOFOVIR DISOPROXIL FUMARATE
     Indication: HERPES ZOSTER DISSEMINATED
     Dosage: UNK, 1X/DAY
     Route: 048
     Dates: start: 2015
  11. TRUVADA [Concomitant]
     Active Substance: EMTRICITABINE\TENOFOVIR DISOPROXIL FUMARATE
     Indication: HIV INFECTION
  12. NORCO [Concomitant]
     Active Substance: ACETAMINOPHEN\HYDROCODONE BITARTRATE
     Indication: PAIN
     Dosage: UNK UNK, AS NEEDED (HYDROCODONE BITARTRATE: 10, PARACETAMOL: 325)/1 PO Q80 PRN PAIN
     Route: 048
  13. DAPSONE. [Concomitant]
     Active Substance: DAPSONE
     Indication: HERPES ZOSTER DISSEMINATED
     Dosage: 100 MG, 1X/DAY
     Route: 048
     Dates: start: 2015
  14. DAPSONE. [Concomitant]
     Active Substance: DAPSONE
     Indication: CD4 LYMPHOCYTES INCREASED
  15. ULTRAM [Concomitant]
     Active Substance: TRAMADOL HYDROCHLORIDE
     Dosage: 50 MG, UNK
  16. TRAUMACAL [Concomitant]
     Dosage: UNK (1 CAN)
  17. COUMADIN [Concomitant]
     Active Substance: WARFARIN SODIUM
     Dosage: UNK
  18. ENSURE [Concomitant]
     Active Substance: AMINO ACIDS\DEXTROSE\ELECTROLYTES NOS\SOYBEAN OIL\VITAMINS
     Dosage: UNK
  19. NORCO [Concomitant]
     Active Substance: ACETAMINOPHEN\HYDROCODONE BITARTRATE
     Dosage: 1 DF, UNK
  20. MOTRIN [Concomitant]
     Active Substance: IBUPROFEN
     Dosage: 800 MG, UNK

REACTIONS (12)
  - Drug ineffective for unapproved indication [Recovering/Resolving]
  - Asthenia [Not Recovered/Not Resolved]
  - Pancytopenia [Unknown]
  - Electrolyte imbalance [Unknown]
  - Ear pain [Unknown]
  - Condition aggravated [Not Recovered/Not Resolved]
  - Malaise [Unknown]
  - Oropharyngeal pain [Recovered/Resolved]
  - Weight decreased [Unknown]
  - Osteoarthritis [Not Recovered/Not Resolved]
  - Headache [Recovered/Resolved]
  - Neck pain [Not Recovered/Not Resolved]

NARRATIVE: CASE EVENT DATE: 20150609
